FAERS Safety Report 7177986-8 (Version None)
Quarter: 2010Q4

REPORT INFORMATION
  Report Type: 
  Country: None (occurrence: None)
  Receive Date: 20101220
  Receipt Date: 20101209
  Transmission Date: 20110411
  Serious: Yes (Other)
  Sender: FDA-Public Use
  Company Number: ES-ACTELION-A-CH2010-42522

PATIENT
  Age: 29 Year
  Sex: Male

DRUGS (4)
  1. TRACLEER [Suspect]
     Indication: PULMONARY HYPERTENSION
     Dosage: 125 MG, BID
     Route: 048
  2. METHYLPREDNISOLONE [Concomitant]
  3. HEPARIN [Concomitant]
  4. OXYGEN [Concomitant]

REACTIONS (2)
  - ENDARTERECTOMY [None]
  - STERNOTOMY [None]
